FAERS Safety Report 9378137 (Version 1)
Quarter: 2013Q3

REPORT INFORMATION
  Report Type: Spontaneous
  Country: FR (occurrence: FR)
  Receive Date: 20130701
  Receipt Date: 20130701
  Transmission Date: 20140515
  Serious: Yes (Hospitalization)
  Sender: FDA-Public Use
  Company Number: FR-TEVA-416210ISR

PATIENT
  Age: 83 Year
  Sex: Male

DRUGS (14)
  1. FUROSEMIDE TEVA 40MG SCORED TABLET [Suspect]
     Dosage: 5 DOSAGE FORMS DAILY;
     Route: 048
     Dates: end: 20130521
  2. RISPERIDONE 1MG TABLET RITEAID [Suspect]
     Route: 048
     Dates: start: 20130506, end: 20130521
  3. MIANSERINE TEVA [Concomitant]
     Dosage: INTRODUCTION 20-FEB-2013
     Dates: start: 20130220
  4. TRAMADOL 50MG [Concomitant]
     Indication: ARTHRALGIA
     Dosage: INTRODUCTION 20-FEB-2013
     Dates: start: 20130220
  5. DIFFU K [Concomitant]
  6. PREVISCAN [Concomitant]
     Dosage: DELIVERED IN 04-MAY-2013
  7. TRIATEC [Concomitant]
  8. LASILIX 40 [Concomitant]
  9. BISOPROLOL [Concomitant]
     Dosage: DELIVERED IN 04-MAY-2013
  10. SPIRONOLACTONE TEVA 25 MG [Concomitant]
     Dosage: DELIVERED IN 26-APR-2013
  11. HEMIGOXINE [Concomitant]
     Dosage: DELIVERED IN 04-MAY-2013
  12. CETIRIZINE TEVA [Concomitant]
     Dosage: DELIVERED IN 04-MAY-2013
  13. SIMVASTATINE [Concomitant]
     Dosage: DELIVERED IN 26-APR-2013
  14. RAMIPRIL TEVA 10MG [Concomitant]
     Dosage: DELIVERED IN 26-APR-2013

REACTIONS (4)
  - Fall [Unknown]
  - Disorientation [Recovered/Resolved]
  - Insomnia [Unknown]
  - Hallucination [Unknown]
